FAERS Safety Report 11650989 (Version 4)
Quarter: 2015Q4

REPORT INFORMATION
  Report Type: Spontaneous
  Country: IT (occurrence: IT)
  Receive Date: 20151021
  Receipt Date: 20151027
  Transmission Date: 20160304
  Serious: Yes (Life-Threatening, Other)
  Sender: FDA-Public Use
  Company Number: PHHY2015IT135135

PATIENT
  Age: 66 Year
  Sex: Male

DRUGS (1)
  1. ENOXAPARIN [Suspect]
     Active Substance: ENOXAPARIN
     Indication: ANTICOAGULANT THERAPY
     Dosage: 6000 IU, BID (2/DIE)
     Route: 065

REACTIONS (2)
  - Retroperitoneal haemorrhage [Unknown]
  - Angiomyolipoma [Unknown]
